FAERS Safety Report 25776000 (Version 2)
Quarter: 2025Q3

REPORT INFORMATION
  Report Type: Report from Study
  Country: EU (occurrence: EU)
  Receive Date: 20250909
  Receipt Date: 20250923
  Transmission Date: 20251020
  Serious: Yes (Hospitalization, Other)
  Sender: SANOFI AVENTIS
  Company Number: EU-SA-2025SA169126

PATIENT
  Age: 19 Year
  Sex: Male
  Weight: 80 kg

DRUGS (27)
  1. TEPLIZUMAB [Suspect]
     Active Substance: TEPLIZUMAB
     Indication: Diabetes prophylaxis
     Route: 042
     Dates: start: 20250602, end: 20250602
  2. TEPLIZUMAB [Suspect]
     Active Substance: TEPLIZUMAB
     Route: 042
     Dates: start: 20250605, end: 20250605
  3. TEPLIZUMAB [Suspect]
     Active Substance: TEPLIZUMAB
     Route: 042
     Dates: start: 20250606, end: 202506
  4. DIPHENHYDRAMINE HYDROCHLORIDE [Concomitant]
     Active Substance: DIPHENHYDRAMINE HYDROCHLORIDE
     Indication: Premedication
     Route: 042
     Dates: start: 20250603
  5. ACETAMINOPHEN [Concomitant]
     Active Substance: ACETAMINOPHEN
     Indication: Premedication
     Route: 048
     Dates: start: 20250603, end: 20250604
  6. ACETAMINOPHEN [Concomitant]
     Active Substance: ACETAMINOPHEN
     Route: 048
     Dates: start: 20250605, end: 20250605
  7. ACETAMINOPHEN [Concomitant]
     Active Substance: ACETAMINOPHEN
     Route: 048
     Dates: start: 20250606, end: 20250606
  8. VERAPAMIL [Concomitant]
     Active Substance: VERAPAMIL HYDROCHLORIDE
  9. VITAMIN D3 [Concomitant]
     Active Substance: CHOLECALCIFEROL
     Indication: Premedication
     Dosage: 2 DF (DROPS/GTT), QD
     Route: 048
     Dates: start: 20250603, end: 20250609
  10. METFORMIN [Concomitant]
     Active Substance: METFORMIN HYDROCHLORIDE
  11. EPIPEN [Concomitant]
     Active Substance: EPINEPHRINE
     Indication: Premedication
     Route: 030
     Dates: start: 20250602
  12. IBUPROFEN [Concomitant]
     Active Substance: IBUPROFEN
     Indication: Pain
     Route: 048
     Dates: start: 20250603, end: 20250603
  13. IBUPROFEN [Concomitant]
     Active Substance: IBUPROFEN
     Indication: Body temperature increased
     Route: 048
     Dates: start: 20250604, end: 20250604
  14. ZOFRAN [Concomitant]
     Active Substance: ONDANSETRON HYDROCHLORIDE
     Indication: Premedication
     Route: 048
     Dates: start: 20250603, end: 20250604
  15. ZOFRAN [Concomitant]
     Active Substance: ONDANSETRON HYDROCHLORIDE
     Route: 048
     Dates: start: 20250605, end: 20250605
  16. ZOFRAN [Concomitant]
     Active Substance: ONDANSETRON HYDROCHLORIDE
     Route: 048
     Dates: start: 20250606, end: 20250606
  17. PREDNISOLONE [Concomitant]
     Active Substance: PREDNISOLONE
     Indication: Premedication
     Route: 042
     Dates: start: 20250602
  18. METASOL [METHYLPREDNISOLONE] [Concomitant]
     Indication: Premedication
     Route: 042
     Dates: start: 20250602
  19. LEVOCETIRIZINE DIHYDROCHLORIDE [Concomitant]
     Active Substance: LEVOCETIRIZINE DIHYDROCHLORIDE
     Indication: Premedication
     Route: 048
     Dates: start: 20250605, end: 20250605
  20. LEVOCETIRIZINE DIHYDROCHLORIDE [Concomitant]
     Active Substance: LEVOCETIRIZINE DIHYDROCHLORIDE
     Route: 048
     Dates: start: 20250606, end: 20250606
  21. ELO MEL ISOTON [Concomitant]
     Indication: Premedication
     Dates: start: 20250602
  22. AMOXICILLIN [Concomitant]
     Active Substance: AMOXICILLIN
     Indication: Premedication
     Dosage: 500 MG (6 MG/KG), TID AND ANOTHER DOSE AT 22:00
     Route: 048
     Dates: start: 20250603, end: 20250603
  23. AMOXICILLIN [Concomitant]
     Active Substance: AMOXICILLIN
     Dosage: 500 MG (6 MG/KG), TID AND ANOTHER DOSE AT 16:00
     Route: 048
     Dates: start: 20250604, end: 20250604
  24. AMOXICILLIN [Concomitant]
     Active Substance: AMOXICILLIN
     Dosage: 500 MG (6 MG/KG), TID AND ANOTHER DOSE AT 08:00 AND AT 16:00
     Route: 048
     Dates: start: 20250605, end: 20250605
  25. AMOXICILLIN [Concomitant]
     Active Substance: AMOXICILLIN
     Dosage: 500 MG (6 MG/KG), TID AND ANOTHER DOSE AT 08:00 AND AT 16:00
     Route: 048
     Dates: start: 20250606, end: 20250606
  26. AMOXICILLIN [Concomitant]
     Active Substance: AMOXICILLIN
     Dosage: 500 MG (6 MG/KG), TID AND ANOTHER DOSE AT 14:00 AND AT 20:00
     Route: 048
     Dates: start: 20250607, end: 20250607
  27. AMOXICILLIN [Concomitant]
     Active Substance: AMOXICILLIN
     Dosage: 500 MG (6 MG/KG), TID
     Route: 048
     Dates: start: 20250608, end: 20250608

REACTIONS (12)
  - Drug-induced liver injury [Recovering/Resolving]
  - Aspartate aminotransferase increased [Recovered/Resolved]
  - Alanine aminotransferase increased [Recovered/Resolved]
  - Cytokine release syndrome [Recovered/Resolved]
  - Asthenia [Unknown]
  - C-reactive protein increased [Recovered/Resolved]
  - Dizziness [Unknown]
  - Lymphopenia [Unknown]
  - Rash [Unknown]
  - Pyrexia [Recovered/Resolved]
  - Accidental overdose [Unknown]
  - Product preparation error [Unknown]

NARRATIVE: CASE EVENT DATE: 20250601
